FAERS Safety Report 7807189-2 (Version None)
Quarter: 2011Q4

REPORT INFORMATION
  Report Type: 
  Country: None (occurrence: None)
  Receive Date: 20111011
  Receipt Date: 20111006
  Transmission Date: 20120403
  Serious: Yes (Death, Other)
  Sender: FDA-Public Use
  Company Number: PHEH2010US00506

PATIENT
  Sex: Female
  Weight: 74.336 kg

DRUGS (7)
  1. AMOXICILLIN [Concomitant]
  2. CELEBREX [Concomitant]
  3. AREDIA [Suspect]
     Indication: METASTASES TO BONE
  4. ZOMETA [Suspect]
  5. ZYRTEC [Concomitant]
  6. AREDIA [Suspect]
     Indication: BREAST CANCER METASTATIC
     Dosage: 90 MG, UNK
     Route: 042
  7. BEXTRA [Concomitant]

REACTIONS (70)
  - PERIPHERAL VASCULAR DISORDER [None]
  - GROIN PAIN [None]
  - ATELECTASIS [None]
  - ACUTE SINUSITIS [None]
  - NEOPLASM MALIGNANT [None]
  - ABDOMINAL PAIN UPPER [None]
  - PULMONARY OEDEMA [None]
  - DYSPEPSIA [None]
  - OSTEONECROSIS OF JAW [None]
  - LUNG NEOPLASM [None]
  - EMPHYSEMA [None]
  - CHEST PAIN [None]
  - HOT FLUSH [None]
  - HYPERLIPIDAEMIA [None]
  - RESPIRATORY DISTRESS [None]
  - RENAL CYST [None]
  - BONE PAIN [None]
  - PLEURAL EFFUSION [None]
  - ARTERIOSCLEROSIS [None]
  - RENAL FAILURE [None]
  - SKIN LESION [None]
  - GASTRITIS [None]
  - FURUNCLE [None]
  - ANAEMIA [None]
  - PAIN [None]
  - ANHEDONIA [None]
  - PNEUMONIA [None]
  - TENDERNESS [None]
  - LYMPHADENOPATHY [None]
  - MYOCARDIAL INFARCTION [None]
  - THROMBOCYTOSIS [None]
  - DEATH [None]
  - INJURY [None]
  - DISABILITY [None]
  - ANXIETY [None]
  - ARTHRALGIA [None]
  - INTERVERTEBRAL DISC DEGENERATION [None]
  - OSTEOPENIA [None]
  - ORAL TORUS [None]
  - NASAL CONGESTION [None]
  - NEOPLASM PROGRESSION [None]
  - UTERINE LEIOMYOMA [None]
  - PALMAR-PLANTAR ERYTHRODYSAESTHESIA SYNDROME [None]
  - INSOMNIA [None]
  - MIGRAINE [None]
  - PHARYNGITIS [None]
  - BENIGN INTRACRANIAL HYPERTENSION [None]
  - CORONARY ARTERY DISEASE [None]
  - DYSPNOEA [None]
  - GASTROOESOPHAGEAL REFLUX DISEASE [None]
  - HYPERTENSION [None]
  - UPPER RESPIRATORY TRACT INFECTION [None]
  - CERVICITIS [None]
  - OSTEOARTHRITIS [None]
  - INTERVERTEBRAL DISC PROTRUSION [None]
  - CHRONIC OBSTRUCTIVE PULMONARY DISEASE [None]
  - BLOOD CHOLESTEROL INCREASED [None]
  - BRONCHITIS [None]
  - HEPATIC STEATOSIS [None]
  - DIVERTICULUM [None]
  - INTERVERTEBRAL DISC SPACE NARROWING [None]
  - CONSTIPATION [None]
  - HERPES ZOSTER [None]
  - HIATUS HERNIA [None]
  - HIDRADENITIS [None]
  - PRESYNCOPE [None]
  - MUCOSAL INFLAMMATION [None]
  - RHINORRHOEA [None]
  - PAPILLOEDEMA [None]
  - DEPRESSION [None]
